FAERS Safety Report 23573394 (Version 3)
Quarter: 2024Q2

REPORT INFORMATION
  Report Type: Spontaneous
  Country: JP (occurrence: JP)
  Receive Date: 20240228
  Receipt Date: 20240404
  Transmission Date: 20240716
  Serious: Yes (Other)
  Sender: FDA-Public Use
  Company Number: JP-ASTRAZENECA-240007714_013120_P_1

PATIENT
  Age: 55 Year
  Sex: Male
  Weight: 70 kg

DRUGS (6)
  1. PACLITAXEL [Suspect]
     Active Substance: PACLITAXEL
     Indication: Non-small cell lung cancer
     Dates: start: 20230324, end: 20230331
  2. IMFINZI [Suspect]
     Active Substance: DURVALUMAB
     Indication: Non-small cell lung cancer
     Route: 041
     Dates: start: 20230324, end: 20230324
  3. IMFINZI [Suspect]
     Active Substance: DURVALUMAB
     Route: 041
     Dates: start: 20230501, end: 20230501
  4. IMJUDO [Suspect]
     Active Substance: TREMELIMUMAB\TREMELIMUMAB-ACTL
     Indication: Non-small cell lung cancer
     Route: 041
     Dates: start: 20230324, end: 20230324
  5. IMJUDO [Suspect]
     Active Substance: TREMELIMUMAB\TREMELIMUMAB-ACTL
     Route: 041
     Dates: start: 20230501, end: 20230501
  6. CARBOPLATIN [Suspect]
     Active Substance: CARBOPLATIN
     Indication: Non-small cell lung cancer
     Dates: start: 20230324, end: 20230324

REACTIONS (1)
  - Immune-mediated cholangitis [Recovering/Resolving]

NARRATIVE: CASE EVENT DATE: 20230418
